FAERS Safety Report 6703567-3 (Version None)
Quarter: 2010Q2

REPORT INFORMATION
  Report Type: 
  Country: None (occurrence: None)
  Receive Date: 20100430
  Receipt Date: 20100419
  Transmission Date: 20101027
  Serious: Yes (Life-Threatening, Hospitalization, Other)
  Sender: FDA-Public Use
  Company Number: DK-PFIZER INC-2010030231

PATIENT
  Age: 65 Year
  Sex: Male

DRUGS (8)
  1. DALACIN [Suspect]
     Indication: ABSCESS
     Dosage: 300 MG, 2X/DAY
     Route: 048
     Dates: start: 20100303, end: 20100304
  2. RIMACTANE [Concomitant]
     Indication: HIDRADENITIS
     Dosage: 450 MG, 2X/DAY
     Dates: start: 20100115, end: 20100304
  3. RIMACTANE [Concomitant]
     Indication: ABSCESS
  4. CLINDAMYCIN [Concomitant]
     Indication: ABSCESS
     Dosage: 300 MG, 2X/DAY
     Dates: start: 20100115, end: 20100302
  5. HUMALOG [Concomitant]
     Indication: DIABETES MELLITUS
     Dosage: UNK
  6. INSULIN DETEMIR [Concomitant]
  7. ENALAPRIL [Concomitant]
     Dosage: 20 MG, 1X/DAY
  8. PRAVASTATIN [Concomitant]
     Dosage: 40 MG, 1X/DAY

REACTIONS (1)
  - ANAPHYLACTIC SHOCK [None]
